FAERS Safety Report 5003002-X (Version None)
Quarter: 2006Q2

REPORT INFORMATION
  Report Type: 
  Country: None (occurrence: None)
  Receive Date: 20060516
  Receipt Date: 20060228
  Transmission Date: 20061013
  Serious: Yes (Hospitalization, Other)
  Sender: FDA-Public Use
  Company Number: US-MERCK-0603USA00087

PATIENT
  Age: 73 Year
  Sex: Male
  Weight: 80 kg

DRUGS (2)
  1. VIOXX [Suspect]
     Indication: ARTHRITIS
     Route: 048
     Dates: start: 20020101, end: 20030901
  2. VIOXX [Suspect]
     Route: 048
     Dates: start: 20020101, end: 20030901

REACTIONS (3)
  - CEREBROVASCULAR ACCIDENT [None]
  - MALIGNANT MELANOMA [None]
  - MYOCARDIAL INFARCTION [None]
